FAERS Safety Report 5598796-9 (Version None)
Quarter: 2008Q1

REPORT INFORMATION
  Report Type: 
  Country: None (occurrence: None)
  Receive Date: 20080122
  Receipt Date: 20080109
  Transmission Date: 20080703
  Serious: Yes (Other)
  Sender: FDA-Public Use
  Company Number: US-BRACCO-BDI-010317

PATIENT
  Age: 53 Year
  Sex: Male
  Weight: 77.9 kg

DRUGS (14)
  1. GADOPENTATE DIMEGLUMINE [Suspect]
     Indication: ANGIOGRAM
     Route: 065
     Dates: start: 20060306, end: 20060306
  2. GADOPENTATE DIMEGLUMINE [Suspect]
     Route: 065
     Dates: start: 20060410, end: 20060410
  3. GADOPENTATE DIMEGLUMINE [Suspect]
     Route: 065
     Dates: start: 20060713, end: 20060713
  4. ADEPRIL [Concomitant]
     Route: 065
  5. A.A.S. [Concomitant]
     Route: 065
  6. CALCIJEX [Concomitant]
     Dosage: WITH DIALYSIS 1 MICROGRAM PER MILLILITER, THREE TIMES PER WEEK
     Route: 065
  7. CALCIUM ACETATE [Concomitant]
  8. EPOETIN ALFA [Concomitant]
     Route: 065
  9. AEROTINA D [Concomitant]
     Route: 065
  10. METOPROLOL TARTRATE [Concomitant]
     Route: 065
  11. OXYCODONE AND ACETAMINOPHEN [Concomitant]
     Route: 065
  12. SIMVASTATIN [Concomitant]
     Route: 065
  13. TERAZOSIN HCL [Concomitant]
     Route: 065
  14. COUMADIN [Concomitant]
     Route: 065

REACTIONS (1)
  - NEPHROGENIC SYSTEMIC FIBROSIS [None]
